FAERS Safety Report 5563271-4 (Version None)
Quarter: 2007Q4

REPORT INFORMATION
  Report Type: 
  Country: None (occurrence: None)
  Receive Date: 20071217
  Receipt Date: 20071212
  Transmission Date: 20080405
  Serious: Yes (Death)
  Sender: FDA-Public Use
  Company Number: HQWYE262821NOV06

PATIENT
  Sex: Female
  Weight: 50 kg

DRUGS (7)
  1. MYLOTARG [Suspect]
     Indication: ACUTE MYELOID LEUKAEMIA RECURRENT
     Route: 041
     Dates: start: 20061018, end: 20061018
  2. MYLOTARG [Suspect]
     Route: 041
     Dates: start: 20061023, end: 20061023
  3. BIOFERMIN [Concomitant]
     Indication: PROPHYLAXIS
     Route: 048
  4. ITRIZOLE [Concomitant]
     Indication: PROPHYLAXIS
     Route: 048
  5. BAKTAR [Concomitant]
     Indication: PROPHYLAXIS
     Dosage: DOSE NOT SPECIFIED/DAY
     Route: 048
  6. GASTER [Concomitant]
     Indication: PROPHYLAXIS
     Route: 048
  7. ASPARA K [Concomitant]
     Indication: PROPHYLAXIS
     Route: 048

REACTIONS (4)
  - DISSEMINATED INTRAVASCULAR COAGULATION [None]
  - PULMONARY ALVEOLAR HAEMORRHAGE [None]
  - SEPSIS [None]
  - VENOOCCLUSIVE LIVER DISEASE [None]
